FAERS Safety Report 6192766-8 (Version None)
Quarter: 2009Q2

REPORT INFORMATION
  Report Type: 
  Country: None (occurrence: None)
  Receive Date: 20090518
  Receipt Date: 20080903
  Transmission Date: 20091009
  Serious: No
  Sender: FDA-Public Use
  Company Number: US-TYCO HEALTHCARE/MALLINCKRODT-T200801451

PATIENT

DRUGS (4)
  1. ACETAMINOPHEN AND HYDROCODONE BITARTRATE [Suspect]
     Indication: ARTHRALGIA
     Dosage: 1-2 TABS EVERY 4-6 HRS, PRN
     Route: 048
     Dates: start: 20080728, end: 20080801
  2. NORCO [Concomitant]
     Indication: ARTHRALGIA
     Dosage: 325 MG, 4-6 HOURS PRN
     Route: 048
     Dates: start: 20080804, end: 20080828
  3. VITAMINS                           /90003601/ [Concomitant]
     Indication: SUPPLEMENTATION THERAPY
     Dosage: UNK, QD
     Route: 048
  4. VOLTAREN [Concomitant]
     Indication: ARTHRITIS
     Dosage: 75 MG, BID
     Route: 048
     Dates: end: 20080801

REACTIONS (3)
  - DRUG INEFFECTIVE [None]
  - INSOMNIA [None]
  - RESTLESSNESS [None]
